FAERS Safety Report 14147411 (Version 3)
Quarter: 2018Q1

REPORT INFORMATION
  Report Type: Spontaneous
  Country: US (occurrence: US)
  Receive Date: 20171031
  Receipt Date: 20180102
  Transmission Date: 20180508
  Serious: No
  Sender: FDA-Public Use
  Company Number: US-MYLANLABS-2017M1068461

PATIENT
  Sex: Female
  Weight: 104.31 kg

DRUGS (1)
  1. LANSOPRAZOLE. [Suspect]
     Active Substance: LANSOPRAZOLE
     Indication: GASTROOESOPHAGEAL REFLUX DISEASE
     Dosage: 30 MG, QD
     Dates: end: 201709

REACTIONS (3)
  - Oral mucosal eruption [Recovered/Resolved]
  - Oral mucosal blistering [Recovered/Resolved]
  - Food allergy [Recovered/Resolved]

NARRATIVE: CASE EVENT DATE: 2017
